FAERS Safety Report 4317981-7 (Version None)
Quarter: 2004Q1

REPORT INFORMATION
  Report Type: 
  Country: None (occurrence: None)
  Receive Date: 20040316
  Receipt Date: 20040305
  Transmission Date: 20041129
  Serious: Yes (Hospitalization)
  Sender: FDA-Public Use
  Company Number: PHBS2004CH03075

PATIENT
  Age: 58 Year
  Sex: Female

DRUGS (1)
  1. LOPRESSOR [Suspect]
     Indication: MIGRAINE
     Dates: start: 20040113, end: 20040113

REACTIONS (5)
  - HAEMATOMA [None]
  - JOINT INJURY [None]
  - PERIORBITAL HAEMATOMA [None]
  - SYNCOPE [None]
  - WOUND [None]
